FAERS Safety Report 25736932 (Version 2)
Quarter: 2025Q3

REPORT INFORMATION
  Report Type: Report from Study
  Country: EU (occurrence: EU)
  Receive Date: 20250828
  Receipt Date: 20250924
  Transmission Date: 20251021
  Serious: Yes (Other)
  Sender: TEVA
  Company Number: EU-TEVA-VS-3365022

PATIENT

DRUGS (6)
  1. PREDNISONE [Interacting]
     Active Substance: PREDNISONE
     Indication: Granulomatosis with polyangiitis
     Route: 065
  2. RITUXIMAB [Interacting]
     Active Substance: RITUXIMAB
     Indication: Granulomatosis with polyangiitis
     Route: 065
  3. DENOSUMAB [Interacting]
     Active Substance: DENOSUMAB
     Indication: Product used for unknown indication
     Route: 065
  4. ISONIAZID [Interacting]
     Active Substance: ISONIAZID
     Indication: Product used for unknown indication
     Route: 065
  5. AVACOPAN [Interacting]
     Active Substance: AVACOPAN
     Indication: Granulomatosis with polyangiitis
     Route: 065
  6. RIFAMPIN [Interacting]
     Active Substance: RIFAMPIN
     Indication: Product used for unknown indication
     Route: 065

REACTIONS (7)
  - Mononeuropathy multiplex [Unknown]
  - Labelled drug-drug interaction issue [Unknown]
  - Interferon gamma release assay positive [Unknown]
  - Granulomatosis with polyangiitis [Unknown]
  - Product temperature excursion issue [Unknown]
  - Lower urinary tract symptoms [Unknown]
  - JC polyomavirus test positive [Unknown]
